FAERS Safety Report 19236082 (Version 4)
Quarter: 2021Q2

REPORT INFORMATION
  Report Type: Spontaneous
  Country: US (occurrence: US)
  Receive Date: 20210510
  Receipt Date: 20210603
  Transmission Date: 20210717
  Serious: Yes (Other)
  Sender: FDA-Public Use
  Company Number: US-SA-2021SA151932

PATIENT
  Age: 29 Year
  Sex: Male

DRUGS (1)
  1. CABLIVI [Suspect]
     Active Substance: CAPLACIZUMAB-YHDP
     Indication: THROMBOTIC MICROANGIOPATHY
     Dosage: 11 MG, QD
     Route: 058
     Dates: start: 20210504

REACTIONS (5)
  - Dialysis [Unknown]
  - Haemoglobin decreased [Unknown]
  - Petechiae [Unknown]
  - Epistaxis [Unknown]
  - Product reconstitution quality issue [Unknown]
